FAERS Safety Report 17699121 (Version 4)
Quarter: 2020Q4

REPORT INFORMATION
  Report Type: Report from Study
  Country: BR (occurrence: BR)
  Receive Date: 20200423
  Receipt Date: 20201111
  Transmission Date: 20210113
  Serious: Yes (Hospitalization)
  Sender: FDA-Public Use
  Company Number: PHHY2019BR195293

PATIENT
  Age: 49 Year
  Sex: Female

DRUGS (7)
  1. METHOTREXATE. [Concomitant]
     Active Substance: METHOTREXATE
     Indication: PRODUCT USED FOR UNKNOWN INDICATION
     Dosage: 2.5 MG
     Route: 065
  2. VIMOVO [Concomitant]
     Active Substance: ESOMEPRAZOLE MAGNESIUM\NAPROXEN
     Indication: PRODUCT USED FOR UNKNOWN INDICATION
     Dosage: UNK
     Route: 065
  3. COSENTYX [Suspect]
     Active Substance: SECUKINUMAB
     Indication: PSORIATIC ARTHROPATHY
     Dosage: 300 MG, UNKNOWN (300MG, TWO INJECTIONS)
     Route: 065
     Dates: start: 20201010
  4. SERTRALINE [Suspect]
     Active Substance: SERTRALINE HYDROCHLORIDE
     Indication: DEPRESSION
     Dosage: UNK
     Route: 065
  5. VENLAFAXINE [Suspect]
     Active Substance: VENLAFAXINE HYDROCHLORIDE
     Indication: DEPRESSION
     Dosage: UNK
     Route: 065
  6. COSENTYX [Suspect]
     Active Substance: SECUKINUMAB
     Indication: PSORIASIS
     Dosage: 300 MG, QMO
     Route: 065
     Dates: start: 20190802, end: 20191120
  7. QUETIAPINE. [Suspect]
     Active Substance: QUETIAPINE
     Indication: DEPRESSION
     Dosage: UNK
     Route: 065

REACTIONS (29)
  - Anxiety [Unknown]
  - Psoriasis [Not Recovered/Not Resolved]
  - Pain of skin [Unknown]
  - Dry skin [Not Recovered/Not Resolved]
  - Device issue [Unknown]
  - Erythema [Recovered/Resolved]
  - Stress [Unknown]
  - Injury [Not Recovered/Not Resolved]
  - Incorrect dose administered [Unknown]
  - Skin lesion [Not Recovered/Not Resolved]
  - Inappropriate schedule of product administration [Unknown]
  - Concomitant disease aggravated [Unknown]
  - Skin erosion [Recovered/Resolved]
  - Wrong technique in product usage process [Unknown]
  - Skin fissures [Not Recovered/Not Resolved]
  - Arthralgia [Not Recovered/Not Resolved]
  - Blister [Unknown]
  - Injection site discolouration [Not Recovered/Not Resolved]
  - Limb discomfort [Not Recovered/Not Resolved]
  - Mental disorder [Unknown]
  - Tearfulness [Unknown]
  - Depression [Unknown]
  - Pain [Not Recovered/Not Resolved]
  - Device leakage [Unknown]
  - Pruritus [Unknown]
  - Pain in extremity [Unknown]
  - Bone disorder [Not Recovered/Not Resolved]
  - Emotional disorder [Unknown]
  - Drug ineffective [Not Recovered/Not Resolved]

NARRATIVE: CASE EVENT DATE: 20190816
